FAERS Safety Report 9795882 (Version 3)
Quarter: 2014Q2

REPORT INFORMATION
  Report Type: Spontaneous
  Country: US (occurrence: US)
  Receive Date: 20140103
  Receipt Date: 20140414
  Transmission Date: 20141212
  Serious: Yes (Hospitalization)
  Sender: FDA-Public Use
  Company Number: US-BAYER-2013-158772

PATIENT
  Age: 25 Year
  Sex: Female
  Weight: 54.42 kg

DRUGS (3)
  1. MIRENA [Suspect]
     Indication: CONTRACEPTION
     Dosage: 20 MCG/24HR, CONT
     Route: 015
     Dates: start: 20070710, end: 20080108
  2. TRAMADOL HYDROCHLORIDE [Concomitant]
     Dosage: UNK
     Dates: start: 20060613, end: 20110318
  3. ULTRAM ER [Concomitant]
     Dosage: UNK
     Dates: start: 20050406

REACTIONS (8)
  - Uterine perforation [None]
  - Injury [None]
  - Pain [None]
  - Anxiety [None]
  - Anhedonia [None]
  - Emotional distress [None]
  - Depression [None]
  - Fear of pregnancy [None]
